FAERS Safety Report 6321640-9 (Version None)
Quarter: 2009Q3

REPORT INFORMATION
  Report Type: 
  Country: None (occurrence: None)
  Receive Date: 20090821
  Receipt Date: 20090821
  Transmission Date: 20100115
  Serious: Yes (Life-Threatening, Hospitalization, Disabling)
  Sender: FDA-Public Use
  Company Number: None

PATIENT
  Age: 43 Year
  Sex: Male
  Weight: 104.3273 kg

DRUGS (2)
  1. ISOVUE-M 200 [Suspect]
     Indication: BACK PAIN
     Dosage: 2
     Dates: start: 20090721
  2. ISOVUE-300 [Suspect]

REACTIONS (8)
  - AMNESIA [None]
  - CONVULSION [None]
  - FAECAL INCONTINENCE [None]
  - RESPIRATORY ARREST [None]
  - SKIN DISCOLOURATION [None]
  - SWOLLEN TONGUE [None]
  - TONGUE BITING [None]
  - URINARY INCONTINENCE [None]
